FAERS Safety Report 5058183-9 (Version None)
Quarter: 2006Q3

REPORT INFORMATION
  Report Type: 
  Country: None (occurrence: None)
  Receive Date: 20060721
  Receipt Date: 20060717
  Transmission Date: 20061208
  Serious: Yes (Hospitalization, Other)
  Sender: FDA-Public Use
  Company Number: US-BRISTOL-MYERS SQUIBB COMPANY-13443999

PATIENT
  Sex: Male
  Weight: 82 kg

DRUGS (3)
  1. ERBITUX [Suspect]
     Indication: SQUAMOUS CELL CARCINOMA
     Dosage: LOADING DOSE 15-MAY-06 (400 MG/M2) 250 MG/M2 X 6 WEEKS (22-MAY, 31-MAY, 07-JUN, 12-JUN, 19-JUN-06)
     Route: 042
     Dates: start: 20060619, end: 20060619
  2. TAXOTERE [Suspect]
     Indication: SQUAMOUS CELL CARCINOMA
     Dosage: 15 MG/M2 (30 MG) 22-MAY, 31-MAY, 07-JUN HELD: LIVER FUNCTION TESTS + FEVER DECREASED 19JUN (24MG)
     Route: 042
     Dates: start: 20060619, end: 20060619
  3. RADIATION THERAPY [Suspect]
     Dates: start: 20060623, end: 20060623

REACTIONS (15)
  - ANOREXIA [None]
  - APPLICATION SITE PAIN [None]
  - CHILLS [None]
  - NAUSEA [None]
  - NEUTROPHIL COUNT DECREASED [None]
  - ORAL PAIN [None]
  - PAIN [None]
  - PYREXIA [None]
  - RADIATION INJURY [None]
  - RADIATION SKIN INJURY [None]
  - SKIN EXFOLIATION [None]
  - STOMATITIS [None]
  - VOMITING [None]
  - WEIGHT DECREASED [None]
  - WHITE BLOOD CELL COUNT DECREASED [None]
